FAERS Safety Report 24123184 (Version 1)
Quarter: 2024Q3

REPORT INFORMATION
  Report Type: Spontaneous
  Country: US (occurrence: US)
  Receive Date: 20240723
  Receipt Date: 20240723
  Transmission Date: 20241017
  Serious: No
  Sender: OTSUKA
  Company Number: US-OTSUKA-2023_022026

PATIENT
  Sex: Female

DRUGS (2)
  1. REXULTI [Suspect]
     Active Substance: BREXPIPRAZOLE
     Indication: Bipolar disorder
     Dosage: 0.5 MG
     Route: 065
  2. REXULTI [Suspect]
     Active Substance: BREXPIPRAZOLE
     Dosage: 4 MG, QD
     Route: 065
     Dates: start: 20230823

REACTIONS (4)
  - Insurance issue [Unknown]
  - Product use in unapproved indication [Unknown]
  - Low income [Unknown]
  - No adverse event [Unknown]
